FAERS Safety Report 9247940 (Version 1)
Quarter: 2013Q2

REPORT INFORMATION
  Report Type: Spontaneous
  Country: US (occurrence: US)
  Receive Date: 20130423
  Receipt Date: 20130423
  Transmission Date: 20140414
  Serious: No
  Sender: FDA-Public Use
  Company Number: US-MYLANLABS-2012S1022443

PATIENT
  Age: 88 Year
  Sex: Male
  Weight: 78.93 kg

DRUGS (8)
  1. IPRATROPIUM BROMIDE AND ALBUTEROL SULFATE INHALATION SOLUTION [Suspect]
     Indication: CHRONIC OBSTRUCTIVE PULMONARY DISEASE
     Route: 055
     Dates: start: 201210
  2. SIMVASTATIN [Concomitant]
     Route: 048
  3. PROTONIX [Concomitant]
     Route: 048
  4. LIPITOR [Concomitant]
     Route: 048
  5. COREG [Concomitant]
     Route: 048
  6. ISOSORBIDE [Concomitant]
     Route: 048
  7. RAMIPRIL [Concomitant]
     Route: 048
  8. AMLODIPINE [Concomitant]
     Route: 048

REACTIONS (2)
  - Drug effect decreased [Not Recovered/Not Resolved]
  - Chronic obstructive pulmonary disease [Not Recovered/Not Resolved]
